FAERS Safety Report 5740254-2 (Version None)
Quarter: 2008Q2

REPORT INFORMATION
  Report Type: 
  Country: None (occurrence: None)
  Receive Date: 20080516
  Receipt Date: 20080508
  Transmission Date: 20081010
  Serious: Yes (Other)
  Sender: FDA-Public Use
  Company Number: US-JNJFOC-20080502095

PATIENT
  Sex: Female
  Weight: 54.43 kg

DRUGS (7)
  1. DURAGESIC-100 [Suspect]
     Indication: CANCER PAIN
     Route: 062
  2. DURAGESIC-100 [Suspect]
     Indication: BONE NEOPLASM MALIGNANT
     Route: 062
  3. TAXOL [Suspect]
     Indication: BONE NEOPLASM MALIGNANT
     Route: 042
  4. LORTAB [Concomitant]
     Indication: PAIN
     Route: 048
  5. RESTORIL [Concomitant]
     Indication: SLEEP DISORDER
     Route: 048
  6. VERAPAMIL [Concomitant]
     Indication: BLOOD PRESSURE
     Route: 048
  7. ATIVAN [Concomitant]
     Route: 048

REACTIONS (8)
  - BONE NEOPLASM MALIGNANT [None]
  - BREAST CANCER [None]
  - EATING DISORDER [None]
  - HEPATIC NEOPLASM MALIGNANT [None]
  - INAPPROPRIATE SCHEDULE OF DRUG ADMINISTRATION [None]
  - PHARMACEUTICAL PRODUCT COMPLAINT [None]
  - WEIGHT FLUCTUATION [None]
  - WITHDRAWAL SYNDROME [None]
